FAERS Safety Report 8176606-3 (Version None)
Quarter: 2012Q1

REPORT INFORMATION
  Report Type: 
  Country: None (occurrence: None)
  Receive Date: 20120301
  Receipt Date: 20120220
  Transmission Date: 20120608
  Serious: Yes (Hospitalization)
  Sender: FDA-Public Use
  Company Number: US-BAYER-2011-029560

PATIENT
  Age: 24 Year
  Sex: Female
  Weight: 86 kg

DRUGS (3)
  1. YAZ [Suspect]
     Indication: CONTRACEPTION
  2. PHENTERMINE [Concomitant]
     Indication: OBESITY
     Dosage: UNK
     Route: 048
     Dates: start: 20070918, end: 20071116
  3. YAZ [Suspect]
     Indication: POLYCYSTIC OVARIES
     Dosage: UNK
     Dates: start: 20061101, end: 20091101

REACTIONS (7)
  - PAIN [None]
  - ANXIETY [None]
  - INJURY [None]
  - EMOTIONAL DISTRESS [None]
  - FEAR [None]
  - PSYCHOLOGICAL TRAUMA [None]
  - SUPRAVENTRICULAR TACHYCARDIA [None]
